FAERS Safety Report 8966770 (Version 1)
Quarter: 2012Q4

REPORT INFORMATION
  Report Type: 
  Country: LT (occurrence: LT)
  Receive Date: 20121217
  Receipt Date: 20121217
  Transmission Date: 20130627
  Serious: Yes (Hospitalization)
  Sender: FDA-Public Use
  Company Number: LT-JNJFOC-20121205253

PATIENT
  Age: 58 Year
  Sex: Male
  Weight: 102 kg

DRUGS (6)
  1. REMICADE [Suspect]
     Indication: PSORIATIC ARTHROPATHY
     Dosage: received 9 infusions
     Route: 042
     Dates: start: 20120116, end: 20121024
  2. REMICADE [Suspect]
     Indication: PSORIASIS
     Dosage: received 9 infusions
     Route: 042
     Dates: start: 20120116, end: 20121024
  3. METHOTREXATE [Concomitant]
     Indication: PSORIATIC ARTHROPATHY
     Route: 048
     Dates: start: 1996, end: 20121030
  4. METHOTREXATE [Concomitant]
     Indication: PSORIASIS
     Route: 048
     Dates: start: 1996, end: 20121030
  5. METOPROLOL [Concomitant]
     Indication: HYPERTENSION
     Route: 048
  6. FOLIC ACID [Concomitant]
     Route: 048

REACTIONS (1)
  - Neuroendocrine carcinoma of the skin [Unknown]
